FAERS Safety Report 6440086-6 (Version None)
Quarter: 2009Q4

REPORT INFORMATION
  Report Type: 
  Country: None (occurrence: None)
  Receive Date: 20091113
  Receipt Date: 20080929
  Transmission Date: 20100525
  Serious: No
  Sender: FDA-Public Use
  Company Number: A0749834A

PATIENT
  Age: 64 Year
  Sex: Female

DRUGS (2)
  1. COREG [Suspect]
     Indication: CARDIOMYOPATHY
     Route: 048
     Dates: start: 20000101
  2. COZAAR [Concomitant]

REACTIONS (3)
  - EPISTAXIS [None]
  - NASAL CONGESTION [None]
  - VENTRICULAR EXTRASYSTOLES [None]
